FAERS Safety Report 17270668 (Version 2)
Quarter: 2020Q1

REPORT INFORMATION
  Report Type: Spontaneous
  Country: JP (occurrence: JP)
  Receive Date: 20200114
  Receipt Date: 20200207
  Transmission Date: 20200409
  Serious: Yes (Hospitalization, Other)
  Sender: FDA-Public Use
  Company Number: JP-AMGEN-JPNSP2019215371

PATIENT
  Age: 8 Decade
  Sex: Male
  Weight: 50 kg

DRUGS (14)
  1. MAGNESIUM OXIDE. [Concomitant]
     Active Substance: MAGNESIUM OXIDE
     Dosage: 330 MG, TID
     Route: 048
  2. RANMARK [Suspect]
     Active Substance: DENOSUMAB
     Indication: METASTASES TO BONE
     Dosage: UNK
     Route: 058
  3. CELECOX [Concomitant]
     Active Substance: CELECOXIB
     Indication: PROSTATE CANCER
     Dosage: 100 MILLIGRAM, BID
     Route: 048
  4. NEXIUM [Concomitant]
     Active Substance: ESOMEPRAZOLE MAGNESIUM
     Indication: CHRONIC GASTRITIS
     Dosage: 10 MILLIGRAM, QD
     Route: 048
  5. MAGNESIUM OXIDE. [Concomitant]
     Active Substance: MAGNESIUM OXIDE
     Indication: CONSTIPATION
     Dosage: 330 MG, TID
     Route: 048
  6. URSODEOXYCHOLIC ACID [Concomitant]
     Active Substance: URSODIOL
     Indication: CHRONIC HEPATITIS
     Dosage: 100 MG, TID
     Route: 048
  7. CELECOX [Concomitant]
     Active Substance: CELECOXIB
     Indication: LUNG NEOPLASM MALIGNANT
     Dosage: UNK
  8. RANMARK [Suspect]
     Active Substance: DENOSUMAB
     Indication: PROSTATE CANCER
     Dosage: 120 MILLIGRAM, Q4WK
     Route: 058
     Dates: start: 201608, end: 20190408
  9. NIFEDIPINE. [Concomitant]
     Active Substance: NIFEDIPINE
     Indication: HYPERTENSION
     Dosage: 20 MG, QD
     Route: 048
  10. PREDONINE [Concomitant]
     Active Substance: PREDNISOLONE
     Indication: PROSTATE CANCER
     Dosage: 5 MILLIGRAM, BID
     Route: 048
  11. PREDONINE [Concomitant]
     Active Substance: PREDNISOLONE
     Indication: LUNG NEOPLASM MALIGNANT
     Dosage: UNK
  12. URSODEOXYCHOLIC ACID [Concomitant]
     Active Substance: URSODIOL
     Dosage: 100 MG, TID
     Route: 048
  13. NIFEDIPINE. [Concomitant]
     Active Substance: NIFEDIPINE
     Dosage: 20 MG, QD
     Route: 048
  14. ETIZOLAM [Concomitant]
     Active Substance: ETIZOLAM
     Indication: ANXIETY DISORDER
     Dosage: 0.5 MILLIGRAM, BID
     Route: 048

REACTIONS (4)
  - Abscess jaw [Recovering/Resolving]
  - Osteonecrosis of jaw [Not Recovered/Not Resolved]
  - Infection [Unknown]
  - Lung neoplasm malignant [Unknown]

NARRATIVE: CASE EVENT DATE: 201610
